FAERS Safety Report 8266364-6 (Version None)
Quarter: 2012Q2

REPORT INFORMATION
  Report Type: 
  Country: None (occurrence: None)
  Receive Date: 20120406
  Receipt Date: 20120402
  Transmission Date: 20120825
  Serious: Yes (Hospitalization)
  Sender: FDA-Public Use
  Company Number: SI-ABBOTT-12P-261-0921378-00

PATIENT
  Age: 71 Year
  Sex: Female

DRUGS (10)
  1. DIAZEPAM [Suspect]
     Indication: BIPOLAR DISORDER
     Route: 048
  2. FLUZEPAM [Suspect]
     Indication: BIPOLAR DISORDER
     Route: 048
  3. RAMIPRIL [Concomitant]
     Indication: PRODUCT USED FOR UNKNOWN INDICATION
  4. PLIVIT D3 [Concomitant]
     Indication: PRODUCT USED FOR UNKNOWN INDICATION
  5. DEPAKENE [Suspect]
     Indication: BIPOLAR DISORDER
     Route: 048
  6. HALDOL [Suspect]
     Indication: BIPOLAR DISORDER
     Route: 030
  7. WELLBUTRIN [Suspect]
     Indication: BIPOLAR DISORDER
     Route: 048
  8. QUETIAPINE [Suspect]
     Indication: BIPOLAR DISORDER
     Route: 048
  9. ASPIRIN [Concomitant]
     Indication: PRODUCT USED FOR UNKNOWN INDICATION
  10. ULTOP [Concomitant]
     Indication: PRODUCT USED FOR UNKNOWN INDICATION

REACTIONS (1)
  - NEUROLEPTIC MALIGNANT SYNDROME [None]
